FAERS Safety Report 7994328-6 (Version None)
Quarter: 2011Q4

REPORT INFORMATION
  Report Type: 
  Country: None (occurrence: None)
  Receive Date: 20111220
  Receipt Date: 20101213
  Transmission Date: 20120403
  Serious: No
  Sender: FDA-Public Use
  Company Number: US-GLAXOSMITHKLINE-A0899558A

PATIENT
  Age: 72 Year
  Sex: Male

DRUGS (15)
  1. TRIAMCINOLONE [Suspect]
     Indication: PSORIASIS
  2. CLOBETASOL [Suspect]
     Indication: PSORIASIS
  3. OMEPRAZOLE [Concomitant]
  4. PREDNISONE [Concomitant]
  5. FINASTERIDE [Concomitant]
  6. CALCIUM [Concomitant]
  7. KEFLEX [Concomitant]
  8. PLATELETS [Concomitant]
  9. VITAMIN B6 [Concomitant]
  10. ALPRAZOLAM [Concomitant]
  11. SORIATANE [Suspect]
     Indication: PRODUCT USED FOR UNKNOWN INDICATION
     Route: 048
     Dates: end: 20100101
  12. COMBIVENT [Concomitant]
  13. PRAVACHOL [Concomitant]
  14. DESONIDE [Suspect]
     Indication: PSORIASIS
  15. ADVAIR DISKUS 100/50 [Concomitant]

REACTIONS (2)
  - DRUG INEFFECTIVE [None]
  - LACRIMATION INCREASED [None]
